FAERS Safety Report 11156278 (Version 1)
Quarter: 2015Q2

REPORT INFORMATION
  Report Type: Spontaneous
  Country: US (occurrence: None)
  Receive Date: 20150601
  Receipt Date: 20150601
  Transmission Date: 20150821
  Serious: No
  Sender: FDA-Public Use
  Company Number: None

PATIENT
  Age: 54 Year
  Sex: Female

DRUGS (13)
  1. VITAMIN D [Concomitant]
     Active Substance: CHOLECALCIFEROL
  2. AMPYRA [Concomitant]
     Active Substance: DALFAMPRIDINE
  3. MULTI-VIT [Concomitant]
     Active Substance: VITAMINS
  4. VALACYCLOVIR [Concomitant]
     Active Substance: VALACYCLOVIR HYDROCHLORIDE
  5. OXYCODONE [Suspect]
     Active Substance: OXYCODONE
  6. VITAMIN D [Concomitant]
     Active Substance: CHOLECALCIFEROL
  7. BONIVA [Concomitant]
     Active Substance: IBANDRONATE SODIUM
  8. REBIF [Suspect]
     Active Substance: INTERFERON BETA-1A
     Indication: MULTIPLE SCLEROSIS
     Route: 058
     Dates: start: 20080723
  9. BUPROPRION AMANTADINE [Concomitant]
  10. MORPHINE [Concomitant]
     Active Substance: MORPHINE
  11. MORPHINE [Concomitant]
     Active Substance: MORPHINE
  12. ZOLPIDEM [Concomitant]
     Active Substance: ZOLPIDEM\ZOLPIDEM TARTRATE
  13. VALTREX [Concomitant]
     Active Substance: VALACYCLOVIR HYDROCHLORIDE

REACTIONS (1)
  - Ankle fracture [None]

NARRATIVE: CASE EVENT DATE: 20150401
